FAERS Safety Report 6566504-0 (Version None)
Quarter: 2010Q1

REPORT INFORMATION
  Report Type: 
  Country: None (occurrence: None)
  Receive Date: 20100127
  Receipt Date: 20100104
  Transmission Date: 20100710
  Serious: Yes (Other)
  Sender: FDA-Public Use
  Company Number: AUR-APL-2010-00151

PATIENT
  Age: 69 Year
  Sex: Male

DRUGS (4)
  1. METOPROLOL TARTRATE [Suspect]
     Indication: HYPERTENSION
     Dosage: 25MG BID PO
     Route: 048
     Dates: start: 20080101
  2. AZOR [Suspect]
     Indication: HYPERTENSION
     Dosage: 10/40MG QD PO
     Route: 048
     Dates: start: 20080101
  3. AMBIEN [Concomitant]
  4. KLONOPIN [Concomitant]

REACTIONS (1)
  - COELIAC DISEASE [None]
